FAERS Safety Report 16877616 (Version 1)
Quarter: 2019Q4

REPORT INFORMATION
  Report Type: Report from Study
  Country: JP (occurrence: JP)
  Receive Date: 20191002
  Receipt Date: 20191002
  Transmission Date: 20200122
  Serious: Yes (Hospitalization)
  Sender: FDA-Public Use
  Company Number: PHJP2017JP021540

PATIENT
  Age: 79 Year
  Sex: Female
  Weight: 61.1 kg

DRUGS (34)
  1. LIPITOR [Concomitant]
     Active Substance: ATORVASTATIN CALCIUM
     Indication: DYSLIPIDAEMIA
     Dosage: 10 MG, QD
     Route: 048
     Dates: start: 20040227
  2. DIART [Concomitant]
     Active Substance: AZOSEMIDE
     Indication: CARDIAC FAILURE
     Dosage: 3 G, QD
     Route: 048
     Dates: start: 20160419, end: 20170709
  3. SELARA [Concomitant]
     Active Substance: EPLERENONE
     Indication: CARDIAC FAILURE
     Dosage: 50 MG, QD
     Route: 048
     Dates: start: 20160419, end: 20170724
  4. PLACEBO [Suspect]
     Active Substance: UNSPECIFIED INGREDIENT
     Indication: CARDIAC FAILURE
     Dosage: UNK
     Route: 048
     Dates: start: 20161019, end: 20170531
  5. PLACEBO [Suspect]
     Active Substance: UNSPECIFIED INGREDIENT
     Dosage: UNK
     Route: 048
     Dates: start: 20170720
  6. EPADEL [Concomitant]
     Active Substance: ICOSAPENT
     Indication: DYSLIPIDAEMIA
     Dosage: 1 DF, BID
     Route: 048
     Dates: start: 20081203
  7. FEBURIC [Concomitant]
     Active Substance: FEBUXOSTAT
     Indication: HYPERURICAEMIA
     Dosage: 20 MG, QD
     Route: 048
     Dates: start: 20130711
  8. GENTAMICIN. [Concomitant]
     Active Substance: GENTAMICIN
     Indication: SKIN ULCER
     Dosage: 50 MG, QD
     Route: 062
     Dates: start: 20150528
  9. DIOVAN [Suspect]
     Active Substance: VALSARTAN
     Dosage: 160 MG, BID
     Route: 048
     Dates: start: 20170720
  10. SAMSCA [Concomitant]
     Active Substance: TOLVAPTAN
     Indication: CARDIAC FAILURE
     Dosage: 3.75 MG, QD
     Route: 048
     Dates: start: 20160317, end: 20170709
  11. LULICONAZOLE. [Concomitant]
     Active Substance: LULICONAZOLE
     Indication: DERMATOPHYTOSIS OF NAIL
     Dosage: 1 RUB, QD
     Route: 062
     Dates: start: 20170302
  12. ZINC OXIDE OINTMENT [Concomitant]
     Indication: PRODUCT USED FOR UNKNOWN INDICATION
     Dosage: 1 RUB, QD
     Route: 062
     Dates: start: 20170316
  13. ENTERONON-R [Concomitant]
     Active Substance: PROBIOTICS NOS
     Indication: DIARRHOEA
     Dosage: 3 G, UNK
     Route: 065
     Dates: start: 20170706, end: 20170712
  14. ARTZ DISPO [Concomitant]
     Indication: OSTEOARTHRITIS
     Dosage: UNK
     Route: 014
     Dates: start: 20170718
  15. RECALBON [Concomitant]
     Indication: OSTEOPOROSIS
     Dosage: 50 MG, QD
     Route: 048
     Dates: start: 201210
  16. BELSOMRA [Concomitant]
     Active Substance: SUVOREXANT
     Indication: INSOMNIA
     Dosage: 15 MG, UNK
     Route: 065
     Dates: start: 20170705
  17. BIOFERMIN [Concomitant]
     Active Substance: DIETARY SUPPLEMENT\PROBIOTICS
     Indication: PRODUCT USED FOR UNKNOWN INDICATION
     Dosage: UNK
     Route: 065
     Dates: start: 20170712
  18. SALAZAC [Concomitant]
     Indication: UPPER RESPIRATORY TRACT INFLAMMATION
     Dosage: UNK
     Route: 065
     Dates: start: 20170718
  19. MAINTATE [Concomitant]
     Active Substance: BISOPROLOL FUMARATE
     Indication: ARRHYTHMIA SUPRAVENTRICULAR
     Dosage: 1.25 MG, QD
     Route: 048
     Dates: start: 20031229
  20. ZEFNART [Concomitant]
     Indication: DERMATOPHYTOSIS OF NAIL
     Dosage: 1 RUB, QD
     Route: 062
     Dates: start: 20170302
  21. ENSURE [Concomitant]
     Active Substance: AMINO ACIDS\DEXTROSE\ELECTROLYTES NOS\SOYBEAN OIL\VITAMINS
     Indication: DECREASED APPETITE
     Dosage: UNK
     Route: 065
     Dates: start: 20170702
  22. DIOVAN [Suspect]
     Active Substance: VALSARTAN
     Indication: CARDIAC FAILURE
     Dosage: 160 MG, BID
     Route: 048
     Dates: start: 20161019, end: 20170531
  23. TAKECAB [Concomitant]
     Active Substance: VONOPRAZAN FUMURATE
     Indication: GASTRITIS PROPHYLAXIS
     Dosage: 10 MG, QD
     Route: 048
     Dates: start: 20170601
  24. AMIODARONE HYDROCHLORIDE. [Concomitant]
     Active Substance: AMIODARONE HYDROCHLORIDE
     Indication: PROPHYLAXIS
     Dosage: 50 MG, QD
     Route: 048
     Dates: start: 20060913
  25. ROZEREM [Concomitant]
     Active Substance: RAMELTEON
     Indication: INSOMNIA
     Dosage: 8 MG, QD
     Route: 048
     Dates: start: 20140108, end: 20170704
  26. SELARA [Concomitant]
     Active Substance: EPLERENONE
     Dosage: 25 MG, QD
     Route: 048
     Dates: start: 20170725
  27. ELCITONIN [Concomitant]
     Active Substance: ELCATONIN
     Indication: OSTEOPOROSIS
     Dosage: 2.86 IU, UNK
     Route: 058
     Dates: start: 201210
  28. TERNELIN [Concomitant]
     Active Substance: TIZANIDINE
     Indication: OSTEOARTHRITIS
     Dosage: 3 MG, QD
     Route: 048
     Dates: start: 20121102
  29. REPLAS 3 [Concomitant]
     Indication: PRODUCT USED FOR UNKNOWN INDICATION
     Dosage: UNK
     Route: 065
     Dates: start: 20170630
  30. ZETIA [Concomitant]
     Active Substance: EZETIMIBE
     Indication: DYSLIPIDAEMIA
     Dosage: 10 MG, QD
     Route: 048
     Dates: start: 20080904
  31. RIVOTRIL [Concomitant]
     Active Substance: CLONAZEPAM
     Indication: INSOMNIA
     Dosage: 0.5 MG, QD
     Route: 048
     Dates: start: 20101209
  32. NERISONA [Concomitant]
     Active Substance: DIFLUCORTOLONE VALERATE
     Indication: ECZEMA
     Dosage: 2 RUBS, BID
     Route: 062
     Dates: start: 20170330
  33. SUVENYL [Concomitant]
     Active Substance: HYALURONATE SODIUM
     Indication: OSTEOARTHRITIS
     Dosage: 2.5 ML, UNK
     Route: 014
     Dates: start: 201303
  34. CALONAL [Concomitant]
     Active Substance: ACETAMINOPHEN
     Indication: OSTEOARTHRITIS
     Dosage: UNK
     Route: 065
     Dates: start: 20170718

REACTIONS (3)
  - Renal impairment [Recovered/Resolved]
  - Septic shock [Recovered/Resolved]
  - Urinary tract infection [Recovered/Resolved]

NARRATIVE: CASE EVENT DATE: 20170629
